FAERS Safety Report 6469853-X (Version None)
Quarter: 2009Q4

REPORT INFORMATION
  Report Type: 
  Country: None (occurrence: None)
  Receive Date: 20091203
  Receipt Date: 20080103
  Transmission Date: 20100525
  Serious: Yes (Hospitalization, Other)
  Sender: FDA-Public Use
  Company Number: US-ELI_LILLY_AND_COMPANY-US200711006520

PATIENT
  Sex: Female

DRUGS (30)
  1. FORTEO [Suspect]
     Indication: OSTEOPOROSIS
     Dosage: 20 UG, DAILY (1/D)
     Dates: start: 20071126, end: 20071126
  2. ZYPREXA [Suspect]
     Dosage: 2.5 MG, UNK
  3. CALCIUM [Concomitant]
     Indication: SUPPLEMENTATION THERAPY
     Dosage: 600 MG, DAILY (1/D)
  4. CORTEF [Concomitant]
     Dosage: 20 MG, EACH MORNING
  5. CORTEF [Concomitant]
     Dosage: 10 MG, EACH EVENING
  6. CYTOMEL [Concomitant]
     Indication: THYROID DISORDER
     Dosage: 5 UG, 2/D
  7. CYTOMEL [Concomitant]
     Dosage: 5 UG, DAILY (1/D)
     Dates: start: 20070101
  8. DEPAKOTE [Concomitant]
     Dosage: 375 MG, 2/D
  9. FLORINEF [Concomitant]
     Dosage: 0.1 MG, 2/D
  10. FLORINEF [Concomitant]
     Dosage: 0.1 MG, EACH EVENING
     Dates: start: 20070101
  11. MULTI-VITAMIN [Concomitant]
     Dosage: UNK, EACH MORNING
  12. POTASSIUM CHLORIDE [Concomitant]
     Dosage: 80 MEQ, EACH MORNING
  13. POTASSIUM CHLORIDE [Concomitant]
     Dosage: 20 MEQ, EACH EVENING
  14. PROTONIX [Concomitant]
     Dosage: 40 MG, DAILY (1/D)
  15. SPIRONOLACTONE [Concomitant]
     Dosage: 25 MG, DAILY (1/D)
  16. VITAMIN D [Concomitant]
     Dosage: 1000 IU, EACH MORNING
  17. DOMEBORO OTIC [Concomitant]
  18. OLOPATADINE [Concomitant]
     Dosage: OU, QHS
  19. GLYCOLAX [Concomitant]
     Indication: CONSTIPATION
  20. ATIVAN [Concomitant]
     Dosage: UNK, AS NEEDED
  21. SOLU-MEDROL [Concomitant]
  22. TRAZODONE HCL [Concomitant]
     Dosage: 50 MG, EACH EVENING
  23. HYDROCODONE [Concomitant]
     Indication: PAIN
  24. CRANBERRY [Concomitant]
     Dosage: 3 UNK, EACH MORNING
  25. CRANBERRY [Concomitant]
     Dosage: 3 UNK, EACH EVENING
  26. CRANBERRY [Concomitant]
     Dosage: 3 UNK, 3/D
     Dates: start: 20070101
  27. HYDROCORTISONE [Concomitant]
     Dosage: 20 MG, EACH MORNING
  28. HYDROCORTISONE [Concomitant]
     Dosage: 10 MG, EACH EVENING
  29. ZOFRAN [Concomitant]
     Dosage: UNK, AS NEEDED
  30. VICODIN [Concomitant]
     Dosage: UNK, AS NEEDED

REACTIONS (7)
  - BLOOD PRESSURE FLUCTUATION [None]
  - DEVICE RELATED SEPSIS [None]
  - DYSPHAGIA [None]
  - HYPERSENSITIVITY [None]
  - STAPHYLOCOCCAL INFECTION [None]
  - TARDIVE DYSKINESIA [None]
  - URINARY TRACT INFECTION [None]
